FAERS Safety Report 9879259 (Version 1)
Quarter: 2014Q1

REPORT INFORMATION
  Report Type: Spontaneous
  Country: US (occurrence: US)
  Receive Date: 20140206
  Receipt Date: 20140206
  Transmission Date: 20141002
  Serious: No
  Sender: FDA-Public Use
  Company Number: US-ALLERGAN-1314490US

PATIENT
  Age: 53 Year
  Sex: Female
  Weight: 52.15 kg

DRUGS (4)
  1. BOTOX [Suspect]
     Indication: MIGRAINE
     Dosage: UNK UNK, SINGLE
     Route: 030
     Dates: start: 20130814, end: 20130814
  2. BOTOX [Suspect]
     Dosage: UNK
     Route: 030
     Dates: start: 2011, end: 2011
  3. PROLIA [Concomitant]
     Indication: OSTEOPOROSIS
     Dosage: 50 MG, TWICE YEARLY
     Dates: start: 2011
  4. PRAVASTATIN [Concomitant]
     Indication: BLOOD CHOLESTEROL INCREASED
     Dosage: 20 MG, QD
     Route: 048
     Dates: start: 2012

REACTIONS (6)
  - Epstein-Barr virus infection [Unknown]
  - Dysphonia [Unknown]
  - Muscular weakness [Recovered/Resolved]
  - Back pain [Recovered/Resolved]
  - Dyspnoea [Unknown]
  - Dysphagia [Unknown]
